FAERS Safety Report 8344133-6 (Version None)
Quarter: 2012Q2

REPORT INFORMATION
  Report Type: 
  Country: None (occurrence: None)
  Receive Date: 20120508
  Receipt Date: 20120506
  Transmission Date: 20120825
  Serious: Yes (Death)
  Sender: FDA-Public Use
  Company Number: PHHY2012MX038854

PATIENT
  Sex: Male

DRUGS (2)
  1. PLAVIX [Concomitant]
     Indication: HYPERTENSION
  2. DIOVAN [Suspect]
     Indication: HYPERTENSION
     Dosage: 3 TABLETS (80 MG), DAILY
     Dates: start: 20050101, end: 20120424

REACTIONS (3)
  - RENAL FAILURE [None]
  - HYPERTENSION [None]
  - CARDIAC ARREST [None]
